FAERS Safety Report 14093633 (Version 2)
Quarter: 2018Q3

REPORT INFORMATION
  Report Type: Spontaneous
  Country: GB (occurrence: GB)
  Receive Date: 20171016
  Receipt Date: 20180806
  Transmission Date: 20181010
  Serious: Yes (Life-Threatening, Congenital Anomaly)
  Sender: FDA-Public Use
  Company Number: GB-TEVA-814228ACC

PATIENT
  Age: 21 Year
  Sex: Female

DRUGS (1)
  1. VALPROATE SODIUM. [Suspect]
     Active Substance: VALPROATE SODIUM
     Route: 064

REACTIONS (10)
  - Ill-defined disorder [Unknown]
  - Congenital anomaly [Unknown]
  - Learning disorder [Unknown]
  - Adverse event [Unknown]
  - Foetal exposure timing unspecified [Unknown]
  - Pain [Unknown]
  - Migraine [Unknown]
  - Dysmorphism [Unknown]
  - Cerebral disorder [Unknown]
  - Autism spectrum disorder [Unknown]
